FAERS Safety Report 10560613 (Version 1)
Quarter: 2014Q4

REPORT INFORMATION
  Report Type: Spontaneous
  Country: US (occurrence: None)
  Receive Date: 20141031
  Receipt Date: 20141031
  Transmission Date: 20150529
  Serious: Yes (Life-Threatening, Hospitalization, Other)
  Sender: FDA-Public Use
  Company Number: None

PATIENT
  Age: 75 Year
  Sex: Male
  Weight: 85.4 kg

DRUGS (2)
  1. OMNIPAGE-350 [Concomitant]
     Indication: SCAN WITH CONTRAST
     Route: 042
     Dates: start: 20141027, end: 20141027
  2. OMNIPAQUE [Suspect]
     Active Substance: IOHEXOL
     Indication: SCAN WITH CONTRAST
     Route: 042
     Dates: start: 20141027, end: 20141027

REACTIONS (9)
  - Sneezing [None]
  - Cardiac arrest [None]
  - Lip swelling [None]
  - Cough [None]
  - Inflammation [None]
  - Seizure [None]
  - Hypotension [None]
  - Ventricular tachycardia [None]
  - Swelling face [None]

NARRATIVE: CASE EVENT DATE: 20141027
